FAERS Safety Report 23073035 (Version 1)
Quarter: 2023Q4

REPORT INFORMATION
  Report Type: Spontaneous
  Country: US (occurrence: US)
  Receive Date: 20231017
  Receipt Date: 20231017
  Transmission Date: 20240109
  Serious: No
  Sender: FDA-Public Use
  Company Number: US-BoehringerIngelheim-2023-BI-266858

PATIENT
  Sex: Female

DRUGS (2)
  1. SPIRIVA RESPIMAT [Suspect]
     Active Substance: TIOTROPIUM BROMIDE
     Indication: Post-acute COVID-19 syndrome
     Dosage: 2 PUFF INHALATION SPRAY
     Dates: start: 20231003, end: 20231005
  2. SYMBICORT [Concomitant]
     Active Substance: BUDESONIDE\FORMOTEROL FUMARATE DIHYDRATE
     Indication: Chronic obstructive pulmonary disease
     Dates: start: 2020

REACTIONS (4)
  - Vision blurred [Recovered/Resolved]
  - Rash erythematous [Recovered/Resolved]
  - Intentional product use issue [Unknown]
  - Pruritus [Unknown]

NARRATIVE: CASE EVENT DATE: 20231003
